APPROVED DRUG PRODUCT: EPLERENONE
Active Ingredient: EPLERENONE
Strength: 25MG
Dosage Form/Route: TABLET;ORAL
Application: A207842 | Product #001 | TE Code: AB
Applicant: WESTMINSTER PHARMACEUTICALS LLC
Approved: Oct 25, 2021 | RLD: No | RS: No | Type: RX